FAERS Safety Report 8530244-9 (Version None)
Quarter: 2012Q3

REPORT INFORMATION
  Report Type: 
  Country: None (occurrence: None)
  Receive Date: 20120723
  Receipt Date: 20120716
  Transmission Date: 20120928
  Serious: Yes (Other)
  Sender: FDA-Public Use
  Company Number: GB-JNJFOC-20120708298

PATIENT
  Age: 29 Year
  Sex: Male

DRUGS (16)
  1. TRIMEPRAZINE TAB [Concomitant]
     Dates: start: 20101008, end: 20120125
  2. METOCLOPRAMIDE [Concomitant]
     Dates: start: 20120411, end: 20120416
  3. REMICADE [Suspect]
     Indication: PSORIASIS
     Route: 042
     Dates: start: 20110817, end: 20120118
  4. BISOPROLOL FUMARATE [Concomitant]
     Dates: start: 20120125
  5. TRIFLUOPERAZINE HCL [Concomitant]
     Dates: start: 20101008, end: 20120125
  6. HYDROXYZINE [Concomitant]
     Dates: start: 20120411
  7. ZOPICLONE [Concomitant]
     Dates: start: 20101008, end: 20120418
  8. ENOXAPARIN [Concomitant]
     Dates: start: 20101008, end: 20120125
  9. CODEINE SULFATE [Concomitant]
     Dates: start: 20101008, end: 20120125
  10. AMLODIPINE [Concomitant]
     Dates: start: 20120125
  11. CHLORPHENIRAMINE TAB [Concomitant]
     Dates: start: 20120411, end: 20120416
  12. TRIMEPRAZINE TAB [Concomitant]
     Dates: start: 20120125
  13. ACETAMINOPHEN [Concomitant]
     Dates: start: 20101008, end: 20120125
  14. PREDNISOLONE [Concomitant]
     Dates: start: 20111229, end: 20120125
  15. OMEPRAZOLE [Concomitant]
     Dates: start: 20120125
  16. FLUOXETINE HCL [Concomitant]
     Dates: start: 20120125

REACTIONS (1)
  - MYELOID LEUKAEMIA [None]
